FAERS Safety Report 5712128-4 (Version None)
Quarter: 2008Q2

REPORT INFORMATION
  Report Type: 
  Country: None (occurrence: None)
  Receive Date: 20080417
  Receipt Date: 20080407
  Transmission Date: 20081010
  Serious: Yes (Other)
  Sender: FDA-Public Use
  Company Number: 18935

PATIENT
  Age: 26 Year
  Sex: Female

DRUGS (10)
  1. DACARBAZINE [Suspect]
     Indication: HODGKIN'S DISEASE
  2. DACARBAZINE [Suspect]
     Indication: NON-HODGKIN'S LYMPHOMA
  3. VINBLASTINE SULFATE [Suspect]
     Indication: HODGKIN'S DISEASE
  4. VINBLASTINE SULFATE [Suspect]
     Indication: NON-HODGKIN'S LYMPHOMA
  5. BLEOMYCIN SULFATE [Suspect]
     Indication: HODGKIN'S DISEASE
  6. BLEOMYCIN SULFATE [Suspect]
     Indication: NON-HODGKIN'S LYMPHOMA
  7. DOXORUBICIN HCL [Suspect]
     Indication: HODGKIN'S DISEASE
  8. DOXORUBICIN HCL [Suspect]
     Indication: NON-HODGKIN'S LYMPHOMA
  9. RITUXIMAB [Suspect]
     Indication: HODGKIN'S DISEASE
  10. RITUXIMAB [Suspect]
     Indication: NON-HODGKIN'S LYMPHOMA

REACTIONS (3)
  - COUGH [None]
  - DRUG TOXICITY [None]
  - PULMONARY TOXICITY [None]
